FAERS Safety Report 5958601-5 (Version None)
Quarter: 2008Q4

REPORT INFORMATION
  Report Type: 
  Country: None (occurrence: None)
  Receive Date: 20081110
  Receipt Date: 20081012
  Transmission Date: 20090506
  Serious: Yes (Death)
  Sender: FDA-Public Use
  Company Number: CHPA2008US18025

PATIENT
  Age: 56 Year
  Sex: Female

DRUGS (9)
  1. DIPHENHYDRAMINE HCL [Suspect]
     Dosage: ORAL
     Route: 048
  2. ALL OTHER THERAPEUTIC PRODUCTS (NO INGREDIENTS/SUBSTANCES) [Suspect]
     Dosage: ORAL
     Route: 048
  3. FENTANYL-100 [Suspect]
     Dosage: ORAL
     Route: 048
  4. ACETAMINOPHEN AND HYDROCODONE BITARTRATE [Suspect]
     Dosage: ORAL
     Route: 048
  5. OXYCODONE HCL [Suspect]
     Dosage: ORAL
     Route: 048
  6. CARISOPRODOL [Suspect]
     Dosage: ORAL
     Route: 048
  7. CITALOPRAM HYDROBROMIDE [Suspect]
     Dosage: ORAL
     Route: 048
  8. BUPROPION HCL [Suspect]
     Dosage: ORAL
     Route: 048
  9. TRAZODONE HCL [Suspect]
     Dosage: ORAL
     Route: 048

REACTIONS (1)
  - DEATH [None]
